FAERS Safety Report 8017339-3 (Version None)
Quarter: 2012Q1

REPORT INFORMATION
  Report Type: 
  Country: None (occurrence: None)
  Receive Date: 20120102
  Receipt Date: 20111224
  Transmission Date: 20120608
  Serious: Yes (Hospitalization, Other)
  Sender: FDA-Public Use
  Company Number: US-ROCHE-1025543

PATIENT
  Age: 44 Year
  Sex: Female
  Weight: 74.8 kg

DRUGS (2)
  1. AVASTIN [Suspect]
     Indication: BREAST CANCER METASTATIC
     Route: 042
     Dates: start: 20110525, end: 20111128
  2. PACLITAXEL [Suspect]
     Indication: BREAST CANCER METASTATIC
     Route: 042
     Dates: start: 20110525, end: 20111128

REACTIONS (9)
  - DIZZINESS [None]
  - LYMPHOCYTE COUNT DECREASED [None]
  - CONSTIPATION [None]
  - NAUSEA [None]
  - HEADACHE [None]
  - VOMITING [None]
  - VISION BLURRED [None]
  - ABDOMINAL PAIN [None]
  - ABDOMINAL DISTENSION [None]
